FAERS Safety Report 4600812-5 (Version None)
Quarter: 2005Q1

REPORT INFORMATION
  Report Type: 
  Country: None (occurrence: None)
  Receive Date: 20050304
  Receipt Date: 20050222
  Transmission Date: 20050727
  Serious: Yes (Disabling, Other)
  Sender: FDA-Public Use
  Company Number: 2004243360DE

PATIENT
  Age: 43 Year
  Sex: Female
  Weight: 79 kg

DRUGS (9)
  1. CELEBREX [Suspect]
     Indication: ANKLE FRACTURE
     Dosage: 400 MG (200 MG, 2 IN 1 D), ORAL
     Route: 048
     Dates: start: 20040907, end: 20040925
  2. HEPARIN-FRACTION SODIUM SALT (HEPARIN-FRACTION SODIUM SALT) [Concomitant]
  3. BUPIVACAINE [Concomitant]
  4. PROPOFOL [Concomitant]
  5. MIDAZOLAM HCL [Concomitant]
  6. DIAZEPAM [Concomitant]
  7. ANTIBIOTICS (ANTIBIOTICS) [Concomitant]
  8. IBUPROFEN [Concomitant]
  9. DIPYRONE TAB [Concomitant]

REACTIONS (1)
  - HEPATITIS CHOLESTATIC [None]
